FAERS Safety Report 14267370 (Version 1)
Quarter: 2017Q4

REPORT INFORMATION
  Report Type: Spontaneous
  Country: US (occurrence: US)
  Receive Date: 20171208
  Receipt Date: 20171208
  Transmission Date: 20180321
  Serious: Yes (Hospitalization)
  Sender: FDA-Public Use
  Company Number: None

PATIENT
  Age: 68 Year
  Sex: Male

DRUGS (7)
  1. CARVEDILOL. [Concomitant]
     Active Substance: CARVEDILOL
  2. BUMETANIDE. [Concomitant]
     Active Substance: BUMETANIDE
  3. ATORVASTATIN [Concomitant]
     Active Substance: ATORVASTATIN
  4. CEPHALEXIN. [Concomitant]
     Active Substance: CEPHALEXIN
  5. IMATINIB MESYLATE. [Suspect]
     Active Substance: IMATINIB MESYLATE
     Indication: CHRONIC LEUKAEMIA
     Route: 048
     Dates: start: 20170428
  6. ELIQUIS [Concomitant]
     Active Substance: APIXABAN
  7. ALLOPURINOL. [Concomitant]
     Active Substance: ALLOPURINOL

REACTIONS (4)
  - Skin neoplasm excision [None]
  - Arthritis infective [None]
  - Vertebral body replacement [None]
  - Knee arthroplasty [None]
